FAERS Safety Report 23189789 (Version 1)
Quarter: 2023Q4

REPORT INFORMATION
  Report Type: Spontaneous
  Country: US (occurrence: US)
  Receive Date: 20231116
  Receipt Date: 20231116
  Transmission Date: 20240110
  Serious: Yes (Other)
  Sender: FDA-Public Use
  Company Number: US-ENDO-CASE-0042289

PATIENT
  Sex: Male

DRUGS (16)
  1. ENDODAN [Suspect]
     Active Substance: ASPIRIN\OXYCODONE HYDROCHLORIDE
  2. PERCOCET [Suspect]
     Active Substance: ACETAMINOPHEN\OXYCODONE HYDROCHLORIDE
  3. ENDOCET [Suspect]
     Active Substance: ACETAMINOPHEN\OXYCODONE HYDROCHLORIDE
  4. ACETAMINOPHEN\OXYCODONE HYDROCHLORIDE [Suspect]
     Active Substance: ACETAMINOPHEN\OXYCODONE HYDROCHLORIDE
  5. ACETAMINOPHEN\HYDROCODONE BITARTRATE [Suspect]
     Active Substance: ACETAMINOPHEN\HYDROCODONE BITARTRATE
  6. OPANA ER [Suspect]
     Active Substance: OXYMORPHONE HYDROCHLORIDE
  7. METHADONE [Suspect]
     Active Substance: METHADONE HYDROCHLORIDE
  8. VICODIN [Suspect]
     Active Substance: ACETAMINOPHEN\HYDROCODONE BITARTRATE
  9. HYDROCODONE BITARTRATE\IBUPROFEN [Suspect]
     Active Substance: HYDROCODONE BITARTRATE\IBUPROFEN
  10. OXYMORPHONE HYDROCHLORIDE [Suspect]
     Active Substance: OXYMORPHONE HYDROCHLORIDE
  11. OXYCONTIN [Suspect]
     Active Substance: OXYCODONE HYDROCHLORIDE
  12. MORPHINE SULFATE [Suspect]
     Active Substance: MORPHINE SULFATE
  13. FENTANYL CITRATE [Suspect]
     Active Substance: FENTANYL CITRATE
  14. ACETAMINOPHEN\HYDROCODONE BITARTRATE [Suspect]
     Active Substance: ACETAMINOPHEN\HYDROCODONE BITARTRATE
  15. OPANA [Suspect]
     Active Substance: OXYMORPHONE HYDROCHLORIDE
  16. DEPODUR [Suspect]
     Active Substance: MORPHINE SULFATE

REACTIONS (3)
  - Overdose [Unknown]
  - Dependence [Unknown]
  - Road traffic accident [Unknown]
